FAERS Safety Report 7587095-1 (Version None)
Quarter: 2011Q3

REPORT INFORMATION
  Report Type: 
  Country: None (occurrence: None)
  Receive Date: 20110701
  Receipt Date: 20110624
  Transmission Date: 20111222
  Serious: Yes (Hospitalization)
  Sender: FDA-Public Use
  Company Number: PHHY2011US56579

PATIENT
  Age: 27 Year
  Sex: Male
  Weight: 36.735 kg

DRUGS (2)
  1. TOBI [Suspect]
     Dosage: 300 MG, BID, 14 DAY ALTERNATE CYCLE WITH COLISTIN
     Dates: start: 20110408
  2. COLISTIN SULFATE [Concomitant]

REACTIONS (1)
  - LUNG INFECTION [None]
